FAERS Safety Report 23951356 (Version 1)
Quarter: 2024Q2

REPORT INFORMATION
  Report Type: Spontaneous
  Country: FR (occurrence: FR)
  Receive Date: 20240607
  Receipt Date: 20240607
  Transmission Date: 20240715
  Serious: Yes (Hospitalization, Other)
  Sender: FDA-Public Use
  Company Number: FR-NOVAST LABORATORIES INC.-2024NOV000249

PATIENT
  Age: 53 Year
  Sex: Female

DRUGS (2)
  1. GEMCITABINE HYDROCHLORIDE [Suspect]
     Active Substance: GEMCITABINE HYDROCHLORIDE
     Indication: Non-small cell lung cancer metastatic
     Dosage: 1250 MILLIGRAM/SQ. METER
     Route: 065
  2. CISPLATIN [Concomitant]
     Active Substance: CISPLATIN
     Indication: Non-small cell lung cancer metastatic
     Dosage: UNK
     Route: 065

REACTIONS (1)
  - Myelitis [Not Recovered/Not Resolved]
